FAERS Safety Report 14947618 (Version 1)
Quarter: 2018Q2

REPORT INFORMATION
  Report Type: Spontaneous
  Country: US (occurrence: US)
  Receive Date: 20180508
  Receipt Date: 20180508
  Transmission Date: 20180711
  Serious: Yes (Disabling)
  Sender: FDA-Public Use
  Company Number: None

PATIENT
  Age: 40 Year
  Sex: Female
  Weight: 120.15 kg

DRUGS (11)
  1. ZANTAC [Concomitant]
     Active Substance: RANITIDINE HYDROCHLORIDE
  2. VICTOZA [Suspect]
     Active Substance: LIRAGLUTIDE
     Indication: INSULIN RESISTANT DIABETES
     Dosage: ?          QUANTITY:2 PENS;OTHER ROUTE:INJECTED INTO STOMACH AREA?
     Dates: start: 20180324, end: 20180508
  3. VITAMIN D [Concomitant]
     Active Substance: CHOLECALCIFEROL
  4. ZINC. [Concomitant]
     Active Substance: ZINC
  5. HCTZ [Concomitant]
     Active Substance: HYDROCHLOROTHIAZIDE
  6. ARMOUR THYROID [Concomitant]
     Active Substance: THYROID, PORCINE
  7. METFORMIN HCL [Concomitant]
     Active Substance: METFORMIN HYDROCHLORIDE
  8. ENALAPRIL [Concomitant]
     Active Substance: ENALAPRIL
  9. IRON [Concomitant]
     Active Substance: IRON
  10. VICTOZA [Suspect]
     Active Substance: LIRAGLUTIDE
     Indication: WEIGHT DECREASED
     Dosage: ?          QUANTITY:2 PENS;OTHER ROUTE:INJECTED INTO STOMACH AREA?
     Dates: start: 20180324, end: 20180508
  11. VITAMIN B COMPLEX [Concomitant]
     Active Substance: CYANOCOBALAMIN\DEXPANTHENOL\NIACINAMIDE\PYRIDOXINE HYDROCHLORIDE\RIBOFLAVIN 5^-PHOSPHATE SODIUM\THIAMINE HYDROCHLORIDE\VITAMIN B COMPLEX

REACTIONS (9)
  - Pain in extremity [None]
  - Glossitis [None]
  - Restless legs syndrome [None]
  - Irritability [None]
  - Malaise [None]
  - Constipation [None]
  - Burn oral cavity [None]
  - Depression [None]
  - Throat irritation [None]

NARRATIVE: CASE EVENT DATE: 20180506
